FAERS Safety Report 5812333-2 (Version None)
Quarter: 2008Q3

REPORT INFORMATION
  Report Type: 
  Country: None (occurrence: None)
  Receive Date: 20080716
  Receipt Date: 20080709
  Transmission Date: 20090109
  Serious: Yes (Other)
  Sender: FDA-Public Use
  Company Number: US-PFIZER INC-2008040426

PATIENT
  Sex: Male

DRUGS (3)
  1. LIPITOR [Suspect]
     Indication: BLOOD CHOLESTEROL INCREASED
  2. ASCORBIC ACID [Concomitant]
  3. VALTREX [Concomitant]

REACTIONS (2)
  - BLEEDING TIME PROLONGED [None]
  - NASAL OPERATION [None]
